FAERS Safety Report 6129148-0 (Version None)
Quarter: 2009Q1

REPORT INFORMATION
  Report Type: 
  Country: None (occurrence: None)
  Receive Date: 20090323
  Receipt Date: 20090323
  Transmission Date: 20090719
  Serious: Yes (Death)
  Sender: FDA-Public Use
  Company Number: None

PATIENT
  Sex: Male
  Weight: 95.2554 kg

DRUGS (3)
  1. SEROQUEL [Suspect]
  2. ZOLOFT [Suspect]
  3. CATAPRES [Suspect]

REACTIONS (3)
  - COMPLETED SUICIDE [None]
  - INSOMNIA [None]
  - PRURITUS [None]
